FAERS Safety Report 12356914 (Version 3)
Quarter: 2016Q3

REPORT INFORMATION
  Report Type: Spontaneous
  Country: US (occurrence: US)
  Receive Date: 20160511
  Receipt Date: 20160712
  Transmission Date: 20161109
  Serious: No
  Sender: FDA-Public Use
  Company Number: US-PFIZER INC-2016240436

PATIENT
  Age: 69 Year
  Sex: Male
  Weight: 80.74 kg

DRUGS (6)
  1. ADVIL [Suspect]
     Active Substance: IBUPROFEN
     Dosage: UNK
     Route: 061
     Dates: start: 20160424, end: 20160424
  2. ADVIL [Suspect]
     Active Substance: IBUPROFEN
     Indication: BACK INJURY
     Dosage: TWO, 200MG TABLET EVERY 7-8 HOURS
     Dates: start: 20160424, end: 20160427
  3. ALEVE PM [Suspect]
     Active Substance: DIPHENHYDRAMINE HYDROCHLORIDE\NAPROXEN SODIUM
     Indication: BACK INJURY
     Dosage: TWO 20MG TABLET EVERY 24 HOURS
     Dates: start: 20160428
  4. ADVIL [Suspect]
     Active Substance: IBUPROFEN
     Indication: PAIN
     Dosage: UNK
     Route: 061
     Dates: start: 20160427
  5. TOPROL XL [Concomitant]
     Active Substance: METOPROLOL SUCCINATE
     Indication: BLOOD PRESSURE ABNORMAL
     Dosage: 75MG, 1/2 TABLET IN THE MORNING AND 1/2 TABLET IN THE EVENING
     Dates: start: 1994
  6. CRESTOR [Concomitant]
     Active Substance: ROSUVASTATIN CALCIUM
     Indication: BLOOD CHOLESTEROL ABNORMAL
     Dosage: 40MG, 1/2 TABLET DAILY
     Dates: start: 1994

REACTIONS (7)
  - Blister [Not Recovered/Not Resolved]
  - Feeling abnormal [Recovered/Resolved]
  - Rash erythematous [Recovered/Resolved]
  - Erythema [Not Recovered/Not Resolved]
  - Skin mass [Not Recovered/Not Resolved]
  - Headache [Recovered/Resolved]
  - Pyrexia [Recovered/Resolved]

NARRATIVE: CASE EVENT DATE: 20160426
